FAERS Safety Report 8807540 (Version 3)
Quarter: 2013Q1

REPORT INFORMATION
  Report Type: Spontaneous
  Country: FR (occurrence: FR)
  Receive Date: 20120925
  Receipt Date: 20130328
  Transmission Date: 20140127
  Serious: Yes (Hospitalization)
  Sender: FDA-Public Use
  Company Number: FR-PFIZER INC-2012234979

PATIENT
  Age: 83 Year
  Sex: Male

DRUGS (6)
  1. EUPANTOL [Suspect]
     Dosage: UNK
     Route: 048
  2. PREVISCAN [Suspect]
     Dosage: UNK
     Route: 048
     Dates: end: 201204
  3. LASILIX [Suspect]
     Dosage: UNK
     Route: 048
  4. SOTALEX [Suspect]
     Dosage: UNK
     Route: 048
  5. KENZEN [Concomitant]
     Dosage: UNK
     Dates: start: 201205
  6. ZANIDIP [Concomitant]
     Dosage: UNK
     Dates: start: 201205

REACTIONS (2)
  - Renal failure [Recovering/Resolving]
  - Proteinuria [Recovering/Resolving]
